FAERS Safety Report 12697262 (Version 1)
Quarter: 2016Q3

REPORT INFORMATION
  Report Type: Spontaneous
  Country: US (occurrence: US)
  Receive Date: 20160830
  Receipt Date: 20160830
  Transmission Date: 20161109
  Serious: No
  Sender: FDA-Public Use
  Company Number: US-JNJFOC-20160710368

PATIENT
  Age: 57 Year
  Sex: Male
  Weight: 122.47 kg

DRUGS (4)
  1. REMICADE [Suspect]
     Active Substance: INFLIXIMAB
     Indication: ARTHROPATHY
     Route: 042
  2. REMICADE [Suspect]
     Active Substance: INFLIXIMAB
     Indication: SPONDYLOARTHROPATHY
     Route: 042
     Dates: start: 201606
  3. REMICADE [Suspect]
     Active Substance: INFLIXIMAB
     Indication: ARTHROPATHY
     Route: 042
     Dates: start: 201606
  4. REMICADE [Suspect]
     Active Substance: INFLIXIMAB
     Indication: SPONDYLOARTHROPATHY
     Route: 042

REACTIONS (5)
  - Chills [Recovered/Resolved]
  - Off label use [Unknown]
  - Treatment noncompliance [Unknown]
  - Product use issue [Unknown]
  - Infusion related reaction [Recovered/Resolved]

NARRATIVE: CASE EVENT DATE: 201606
